FAERS Safety Report 15567182 (Version 1)
Quarter: 2018Q4

REPORT INFORMATION
  Report Type: Spontaneous
  Country: US (occurrence: US)
  Receive Date: 20181030
  Receipt Date: 20181030
  Transmission Date: 20190205
  Serious: No
  Sender: FDA-Public Use
  Company Number: US-BAYER-2018-197826

PATIENT
  Age: 91 Year
  Sex: Male
  Weight: 61 kg

DRUGS (2)
  1. HYDROCORTISONE [HYDROCORTISONE] [Concomitant]
  2. LOTRIMIN ULTRA ANTIFUNGAL [Suspect]
     Active Substance: BUTENAFINE HYDROCHLORIDE
     Indication: ERYTHEMA
     Dosage: UNK
     Route: 061
     Dates: end: 20181023

REACTIONS (8)
  - Wrong technique in product usage process [Unknown]
  - Product use in unapproved indication [None]
  - Application site erythema [Unknown]
  - Application site pain [None]
  - Product prescribing issue [Unknown]
  - Application site pain [Unknown]
  - Application site erythema [Unknown]
  - Application site pruritus [Unknown]

NARRATIVE: CASE EVENT DATE: 20181022
